FAERS Safety Report 20466274 (Version 2)
Quarter: 2022Q1

REPORT INFORMATION
  Report Type: Spontaneous
  Country: AU (occurrence: AU)
  Receive Date: 20220213
  Receipt Date: 20220227
  Transmission Date: 20220424
  Serious: Yes (Other)
  Sender: FDA-Public Use
  Company Number: AU-TEVA-2022-AU-2006504

PATIENT
  Age: 27 Year
  Sex: Male
  Weight: 55 kg

DRUGS (1)
  1. IMATINIB [Suspect]
     Active Substance: IMATINIB
     Indication: Philadelphia chromosome positive
     Route: 065
     Dates: start: 201903

REACTIONS (1)
  - Philadelphia positive acute lymphocytic leukaemia [Unknown]

NARRATIVE: CASE EVENT DATE: 20190801
